FAERS Safety Report 6396647-6 (Version None)
Quarter: 2009Q4

REPORT INFORMATION
  Report Type: 
  Country: None (occurrence: None)
  Receive Date: 20091008
  Receipt Date: 20091008
  Transmission Date: 20100525
  Serious: Yes (Hospitalization)
  Sender: FDA-Public Use
  Company Number: None

PATIENT
  Sex: Female
  Weight: 89.56 kg

DRUGS (12)
  1. NOLVADEX [Suspect]
     Dosage: 20 MG
     Dates: end: 20090227
  2. PLAVIX [Concomitant]
  3. CALAN [Concomitant]
  4. AVINZA [Concomitant]
  5. LYRICA [Concomitant]
  6. ELAVIL [Concomitant]
  7. ZOLOFT [Concomitant]
  8. MORPHINE [Concomitant]
  9. SOMA [Concomitant]
  10. TRAMADOL HCL [Concomitant]
  11. ASPIRIN [Concomitant]
  12. SYNTHROID [Concomitant]

REACTIONS (1)
  - PELVIC PAIN [None]
